FAERS Safety Report 6283874-1 (Version None)
Quarter: 2009Q3

REPORT INFORMATION
  Report Type: 
  Country: None (occurrence: None)
  Receive Date: 20090723
  Receipt Date: 20090723
  Transmission Date: 20100115
  Serious: Yes (Other)
  Sender: FDA-Public Use
  Company Number: None

PATIENT
  Age: 65 Year
  Sex: Male
  Weight: 58.9676 kg

DRUGS (2)
  1. ALPRAZOLAM [Suspect]
     Indication: ANXIETY
     Dosage: 1 MG 2 TIMES DAILY PO
     Route: 048
     Dates: start: 20090130, end: 20090710
  2. ALPRAZOLAM [Suspect]
     Indication: DEPRESSION
     Dosage: 1 MG 2 TIMES DAILY PO
     Route: 048
     Dates: start: 20090130, end: 20090710

REACTIONS (8)
  - DECREASED APPETITE [None]
  - NAUSEA [None]
  - NIGHT SWEATS [None]
  - PANIC ATTACK [None]
  - PRODUCT COMPOUNDING QUALITY ISSUE [None]
  - PRODUCT SUBSTITUTION ISSUE [None]
  - PRODUCT TAMPERING [None]
  - VOMITING [None]
